FAERS Safety Report 9355456 (Version 1)
Quarter: 2013Q2

REPORT INFORMATION
  Report Type: Spontaneous
  Country: US (occurrence: None)
  Receive Date: 20130618
  Receipt Date: 20130618
  Transmission Date: 20140414
  Serious: Yes (Other)
  Sender: FDA-Public Use
  Company Number: None

PATIENT
  Age: 61 Year
  Sex: Female
  Weight: 104.33 kg

DRUGS (1)
  1. SULFAMETHOXAZOLE-TMP [Suspect]
     Route: 048
     Dates: start: 20130521, end: 20130527

REACTIONS (5)
  - Arthralgia [None]
  - Influenza like illness [None]
  - Rash [None]
  - Pruritus [None]
  - Depression [None]
